FAERS Safety Report 10523797 (Version 1)
Quarter: 2014Q4

REPORT INFORMATION
  Report Type: Spontaneous
  Country: US (occurrence: None)
  Receive Date: 20141015
  Receipt Date: 20141015
  Transmission Date: 20150528
  Serious: No
  Sender: FDA-Public Use
  Company Number: None

PATIENT

DRUGS (2)
  1. CEPHALEXIN. [Suspect]
     Active Substance: CEPHALEXIN
     Dosage: SUSPENSION, ORAL, 250 MG PER 5 ML, BOTTLE, 100 ML (WHEN MIXED)
     Route: 048
  2. AMOXICILLIN TEVA [Suspect]
     Active Substance: AMOXICILLIN
     Dosage: SUSPENSION, ORAL, 250 MG PER 5 ML, BOTTLE, 100 ML (WHEN MIXED)
     Route: 048

REACTIONS (3)
  - Product packaging confusion [None]
  - Product label confusion [None]
  - Circumstance or information capable of leading to medication error [None]
